FAERS Safety Report 6473424-9 (Version None)
Quarter: 2009Q4

REPORT INFORMATION
  Report Type: 
  Country: None (occurrence: None)
  Receive Date: 20091204
  Receipt Date: 20090716
  Transmission Date: 20100525
  Serious: Yes (Hospitalization, Other)
  Sender: FDA-Public Use
  Company Number: US-ELI_LILLY_AND_COMPANY-US200810003877

PATIENT
  Sex: Female
  Weight: 107.94 kg

DRUGS (12)
  1. BYETTA [Suspect]
     Dosage: 10 UG, 2/D
     Route: 058
  2. SULAR [Concomitant]
     Dosage: 8.5 MG, DAILY (1/D)
     Route: 048
  3. COUMADIN [Concomitant]
     Dosage: 5 MG, DAILY (1/D)
     Route: 048
  4. DIGOXIN [Concomitant]
     Dosage: 125 UG, DAILY (1/D)
     Route: 048
  5. METOPROLOL [Concomitant]
     Dosage: 25 MG, DAILY (1/D)
     Route: 048
  6. SYNTHROID [Concomitant]
     Dosage: 0.1 MG, DAILY (1/D)
     Route: 048
  7. FOLIC ACID [Concomitant]
     Dosage: 1 MG, DAILY (1/D)
     Route: 048
  8. DEXTRAN INJ [Concomitant]
  9. ADVAIR DISKUS 100/50 [Concomitant]
  10. OXYCONTIN [Concomitant]
  11. DURAGESIC-100 [Concomitant]
  12. MORPHINE [Concomitant]

REACTIONS (3)
  - DIVERTICULITIS [None]
  - NORMOCHROMIC NORMOCYTIC ANAEMIA [None]
  - PANCREATITIS HAEMORRHAGIC [None]
